FAERS Safety Report 9029890 (Version 1)
Quarter: 2013Q1

REPORT INFORMATION
  Report Type: Spontaneous
  Country: US (occurrence: US)
  Receive Date: 20130124
  Receipt Date: 20130124
  Transmission Date: 20140127
  Serious: Yes (Hospitalization)
  Sender: FDA-Public Use
  Company Number: US-NICOBRDEVP-2013-00481

PATIENT
  Age: 63 Year
  Sex: Male
  Weight: 102 kg

DRUGS (3)
  1. FENTANYL [Suspect]
     Indication: BACK PAIN
     Dosage: 1 PATCH EVERY 72 HRS
     Route: 062
     Dates: start: 20130106
  2. FENTANYL [Suspect]
     Dosage: 1 PATCH EVERY 72 HRS
     Route: 062
     Dates: start: 201207, end: 20130105
  3. FENTANYL [Concomitant]
     Indication: BACK PAIN
     Dosage: 1 PATCH EVERY 72 HRS
     Route: 062
     Dates: start: 20130106

REACTIONS (2)
  - Retinal detachment [Recovering/Resolving]
  - Drug ineffective [Not Recovered/Not Resolved]
